FAERS Safety Report 18787649 (Version 1)
Quarter: 2021Q1

REPORT INFORMATION
  Report Type: Spontaneous
  Country: US (occurrence: US)
  Receive Date: 20210125
  Receipt Date: 20210125
  Transmission Date: 20210419
  Serious: No
  Sender: FDA-Public Use
  Company Number: US-ROCHE-2661749

PATIENT
  Age: 70 Year
  Sex: Male
  Weight: 66.74 kg

DRUGS (3)
  1. RITUXAN [Suspect]
     Active Substance: RITUXIMAB
     Route: 041
  2. RITUXAN [Suspect]
     Active Substance: RITUXIMAB
     Indication: PEMPHIGUS
     Route: 041
     Dates: start: 20200811
  3. RITUXAN [Suspect]
     Active Substance: RITUXIMAB
     Dosage: TWO 100 MG VIALS AND ONE 500 MG VIAL DISPENSED TO MAKE UP A DOSE OF 700 MG.
     Route: 041

REACTIONS (3)
  - Off label use [Unknown]
  - No adverse event [Unknown]
  - Intentional product use issue [Unknown]
